FAERS Safety Report 8011525-4 (Version None)
Quarter: 2011Q4

REPORT INFORMATION
  Report Type: 
  Country: None (occurrence: None)
  Receive Date: 20111228
  Receipt Date: 20111220
  Transmission Date: 20120403
  Serious: Yes (Hospitalization, Other)
  Sender: FDA-Public Use
  Company Number: US-CELGENEUS-163-21880-11111365

PATIENT
  Sex: Male

DRUGS (20)
  1. ACYCLOVIR [Concomitant]
     Dosage: 400 MILLIGRAM
     Route: 048
     Dates: start: 20110913
  2. FUROSEMIDE [Concomitant]
     Dosage: 20 MILLIGRAM
     Route: 048
     Dates: start: 20110913
  3. CRESTOR [Concomitant]
     Dosage: 20 MILLIGRAM
     Route: 048
     Dates: start: 20110913
  4. OXYGEN [Concomitant]
     Route: 065
  5. TAMSULOSIN HCL [Concomitant]
     Dosage: .4 MILLIGRAM
     Route: 048
     Dates: start: 20110913
  6. SULFAMETHOXAZOLE AND TRIMETHOPRIM [Concomitant]
     Dosage: 400-80MG
     Route: 048
     Dates: start: 20110913
  7. NEXIUM [Concomitant]
     Dosage: 40 MILLIGRAM
     Route: 048
     Dates: start: 20110913
  8. FERROUS SULFATE TAB [Concomitant]
     Dosage: 325 MILLIGRAM
     Route: 065
  9. COMPAZINE [Concomitant]
     Dosage: 10 MILLIGRAM
     Route: 065
  10. REVLIMID [Suspect]
     Indication: AMYLOIDOSIS
  11. PROCHLORPERAZINE [Concomitant]
     Dosage: 10 MILLIGRAM
     Route: 048
     Dates: start: 20110913
  12. ASPIRIN [Concomitant]
     Dosage: 81 MILLIGRAM
     Route: 048
     Dates: start: 20110913
  13. TRANSFUSION [Concomitant]
     Route: 041
     Dates: start: 20111101
  14. PENTOXIFYLLINE [Concomitant]
     Dosage: 400 MILLIGRAM
     Route: 048
     Dates: start: 20110913
  15. ZITHROMAX [Concomitant]
     Route: 065
  16. BACTRIM [Concomitant]
     Route: 065
  17. POTASSIUM [Concomitant]
     Dosage: 75 MILLIGRAM
     Route: 048
     Dates: start: 20110913
  18. DECADRON [Concomitant]
     Dosage: 40 MILLIGRAM
     Route: 065
  19. REVLIMID [Suspect]
     Indication: MULTIPLE MYELOMA
     Dosage: 25 MILLIGRAM
     Route: 048
     Dates: start: 20110915, end: 20111102
  20. METOPROLOL SUCCINATE [Concomitant]
     Dosage: 25 MILLIGRAM
     Route: 048
     Dates: start: 20110913

REACTIONS (6)
  - OXYGEN SATURATION DECREASED [None]
  - HAEMORRHAGE [None]
  - HYPOTENSION [None]
  - AMYLOIDOSIS [None]
  - LOCALISED INTRAABDOMINAL FLUID COLLECTION [None]
  - HAEMOGLOBIN DECREASED [None]
